FAERS Safety Report 15797290 (Version 4)
Quarter: 2021Q3

REPORT INFORMATION
  Report Type: Spontaneous
  Country: US (occurrence: US)
  Receive Date: 20190108
  Receipt Date: 20210906
  Transmission Date: 20211014
  Serious: Yes (Other)
  Sender: FDA-Public Use
  Company Number: US-PFIZER INC-2019004134

PATIENT
  Age: 75 Year
  Sex: Female
  Weight: 68.03 kg

DRUGS (1)
  1. CYTOMEL [Suspect]
     Active Substance: LIOTHYRONINE SODIUM
     Indication: HYPOTHYROIDISM
     Dosage: 25 MG, 2X/DAY(TAKES TWO PER DAY; ALL THERE IS NOW IS 25 MICROGRAMS)
     Dates: start: 1970

REACTIONS (9)
  - Weight increased [Unknown]
  - Hepatic function abnormal [Unknown]
  - Liposarcoma [Unknown]
  - Cognitive disorder [Unknown]
  - Maternal exposure during pregnancy [Unknown]
  - Muscle discomfort [Unknown]
  - Asthenia [Unknown]
  - Product use issue [Unknown]
  - Memory impairment [Unknown]
